FAERS Safety Report 7302328-4 (Version None)
Quarter: 2011Q1

REPORT INFORMATION
  Report Type: 
  Country: None (occurrence: None)
  Receive Date: 20110218
  Receipt Date: 20110211
  Transmission Date: 20110831
  Serious: Yes (Hospitalization)
  Sender: FDA-Public Use
  Company Number: US-SANOFI-AVENTIS-2011SA009662

PATIENT
  Age: 78 Year
  Sex: Female

DRUGS (2)
  1. OPTICLICK [Suspect]
     Dates: start: 20060101
  2. LANTUS [Suspect]
     Indication: TYPE 2 DIABETES MELLITUS
     Dosage: DOSE:55 UNIT(S)
     Route: 058
     Dates: start: 20060101

REACTIONS (3)
  - COLON CANCER [None]
  - LARGE INTESTINE PERFORATION [None]
  - APPENDICITIS PERFORATED [None]
